FAERS Safety Report 13268646 (Version 1)
Quarter: 2017Q1

REPORT INFORMATION
  Report Type: Spontaneous
  Country: US (occurrence: US)
  Receive Date: 20170224
  Receipt Date: 20170224
  Transmission Date: 20170428
  Serious: Yes (Other)
  Sender: FDA-Public Use
  Company Number: None

PATIENT
  Age: 66 Year
  Sex: Male
  Weight: 81.9 kg

DRUGS (1)
  1. TERAZOSIN [Suspect]
     Active Substance: TERAZOSIN\TERAZOSIN HYDROCHLORIDE
     Indication: BENIGN PROSTATIC HYPERPLASIA
     Dosage: ?          QUANTITY:1 CAPSULE(S);?
     Route: 048

REACTIONS (6)
  - Chest pain [None]
  - Flatulence [None]
  - Sleep disorder [None]
  - Abdominal discomfort [None]
  - Myalgia [None]
  - Product substitution issue [None]

NARRATIVE: CASE EVENT DATE: 20170223
